FAERS Safety Report 23023511 (Version 2)
Quarter: 2023Q4

REPORT INFORMATION
  Report Type: Spontaneous
  Country: US (occurrence: US)
  Receive Date: 20231003
  Receipt Date: 20231016
  Transmission Date: 20240109
  Serious: Yes (Other)
  Sender: FDA-Public Use
  Company Number: US-PFIZER INC-PV202300160678

PATIENT
  Age: 69 Year
  Sex: Female

DRUGS (2)
  1. RIMEGEPANT [Suspect]
     Active Substance: RIMEGEPANT
     Indication: Migraine
     Dosage: UNK, (APPROXIMATELY 4-5 DAYS A MONTH)
  2. BOTULINUM TOXIN TYPE A [Concomitant]
     Active Substance: BOTULINUM TOXIN TYPE A
     Indication: Migraine
     Dosage: UNK

REACTIONS (6)
  - Transient ischaemic attack [Unknown]
  - Lacunar infarction [Unknown]
  - Hypoaesthesia [Recovered/Resolved]
  - Dysarthria [Recovered/Resolved]
  - Dizziness [Unknown]
  - Balance disorder [Unknown]

NARRATIVE: CASE EVENT DATE: 20220101
